FAERS Safety Report 7687983-1 (Version None)
Quarter: 2011Q3

REPORT INFORMATION
  Report Type: 
  Country: None (occurrence: None)
  Receive Date: 20110817
  Receipt Date: 20100803
  Transmission Date: 20111222
  Serious: Yes (Other)
  Sender: FDA-Public Use
  Company Number: US-PFIZER INC-2010098129

PATIENT
  Sex: Female
  Weight: 71.655 kg

DRUGS (2)
  1. CARDIZEM [Concomitant]
     Indication: HYPERTENSION
     Dosage: UNK
  2. LYRICA [Suspect]
     Indication: PARAESTHESIA
     Dosage: 75 MG, 1X/DAY
     Route: 048
     Dates: start: 20100101, end: 20100701

REACTIONS (6)
  - OEDEMA PERIPHERAL [None]
  - INFLUENZA LIKE ILLNESS [None]
  - SWELLING [None]
  - PAIN [None]
  - WEIGHT INCREASED [None]
  - MALAISE [None]
